FAERS Safety Report 9345015 (Version 2)
Quarter: 2013Q2

REPORT INFORMATION
  Report Type: Spontaneous
  Country: US (occurrence: US)
  Receive Date: 20130612
  Receipt Date: 20130617
  Transmission Date: 20140414
  Serious: Yes (Other)
  Sender: FDA-Public Use
  Company Number: US-PERRIGO-13US006002

PATIENT
  Age: 28 Year
  Sex: Male
  Weight: 72.56 kg

DRUGS (1)
  1. LORATADINE 10 MG 612 [Suspect]
     Indication: SEASONAL ALLERGY
     Dosage: 10 MG, SINGLE
     Route: 048
     Dates: start: 20130525, end: 20130525

REACTIONS (3)
  - Reaction to drug excipients [Recovered/Resolved]
  - Urticaria [Recovered/Resolved]
  - Dyspnoea [Recovered/Resolved]
